FAERS Safety Report 11245234 (Version 1)
Quarter: 2015Q3

REPORT INFORMATION
  Report Type: Spontaneous
  Country: US (occurrence: US)
  Receive Date: 20150707
  Receipt Date: 20150707
  Transmission Date: 20151125
  Serious: No
  Sender: FDA-Public Use
  Company Number: US-BAYER-2015-368776

PATIENT
  Age: 85 Year
  Sex: Female
  Weight: 77 kg

DRUGS (4)
  1. WARFARIN [Concomitant]
     Active Substance: WARFARIN
     Dosage: UNK
  2. HYDRAZIDE [HYDROCHLOROTHIAZIDE] [Concomitant]
     Dosage: UNK
  3. ALPRAZOLAM. [Concomitant]
     Active Substance: ALPRAZOLAM
     Dosage: UNK
  4. MIRALAX [Suspect]
     Active Substance: POLYETHYLENE GLYCOL 3350
     Indication: CONSTIPATION
     Dosage: 1 DF, PRN
     Route: 048
     Dates: start: 20150615, end: 20150622

REACTIONS (3)
  - Diarrhoea [Recovered/Resolved]
  - Incorrect drug administration duration [None]
  - Dehydration [Recovered/Resolved]

NARRATIVE: CASE EVENT DATE: 201506
